FAERS Safety Report 7527023-8 (Version None)
Quarter: 2011Q2

REPORT INFORMATION
  Report Type: 
  Country: None (occurrence: None)
  Receive Date: 20110606
  Receipt Date: 20110527
  Transmission Date: 20111010
  Serious: Yes (Disabling, Other)
  Sender: FDA-Public Use
  Company Number: US-ASTRAZENECA-2010SE26164

PATIENT
  Age: 57 Year
  Sex: Female
  Weight: 154.2 kg

DRUGS (19)
  1. LEVAQUIN [Concomitant]
  2. SEROQUEL [Suspect]
     Indication: SLEEP DISORDER
     Dosage: USED TWO AT NIGHT
     Route: 048
     Dates: start: 19920101
  3. TEGRETOL [Concomitant]
  4. RAMIPRIL [Concomitant]
  5. LIPITOR [Concomitant]
  6. POTASSIUM CHLORIDE [Concomitant]
  7. SEROQUEL [Suspect]
     Indication: DEPRESSION
     Dosage: USED TWO AT NIGHT
     Route: 048
     Dates: start: 19920101
  8. ZOLOFT [Concomitant]
  9. VIT E [Concomitant]
  10. FERROUS SULFATE TAB [Concomitant]
  11. NEXIUM [Suspect]
     Route: 048
  12. SEROQUEL [Suspect]
     Indication: MENTAL DISORDER
     Dosage: USED TWO AT NIGHT
     Route: 048
     Dates: start: 19920101
  13. FUROSEMIDE [Concomitant]
  14. CARISOPRODOL [Concomitant]
  15. NEURONTIN [Concomitant]
  16. WOMENS VITAMINS [Concomitant]
  17. NEXIUM [Suspect]
     Indication: GASTROOESOPHAGEAL REFLUX DISEASE
     Route: 048
     Dates: start: 20070101, end: 20100531
  18. GLIPIZIDE [Concomitant]
  19. XYZAL [Concomitant]

REACTIONS (17)
  - FALL [None]
  - NEUROPATHY PERIPHERAL [None]
  - APHAGIA [None]
  - ASTHMA [None]
  - HYPERTENSION [None]
  - WHEELCHAIR USER [None]
  - GOUT [None]
  - PAIN IN EXTREMITY [None]
  - BACK PAIN [None]
  - GASTROOESOPHAGEAL REFLUX DISEASE [None]
  - CATARACT [None]
  - INAPPROPRIATE SCHEDULE OF DRUG ADMINISTRATION [None]
  - OFF LABEL USE [None]
  - DIABETES MELLITUS [None]
  - ARTHRITIS [None]
  - LUNG DISORDER [None]
  - DRUG DOSE OMISSION [None]
